FAERS Safety Report 6255515-0 (Version None)
Quarter: 2009Q3

REPORT INFORMATION
  Report Type: 
  Country: None (occurrence: None)
  Receive Date: 20090702
  Receipt Date: 20090624
  Transmission Date: 20100115
  Serious: Yes (Life-Threatening)
  Sender: FDA-Public Use
  Company Number: CN-ABBOTT-09P-035-0581913-00

PATIENT
  Age: 58 Year
  Sex: Male
  Weight: 60 kg

DRUGS (2)
  1. SEVOFLURANE [Suspect]
     Indication: ANAESTHESIA
     Dosage: FOR MAINTENANCE
     Route: 055
     Dates: start: 20090619, end: 20090619
  2. NIMBEX [Suspect]
     Indication: ANAESTHESIA
     Dosage: 10MG/5ML
     Route: 042
     Dates: start: 20090619, end: 20090619

REACTIONS (3)
  - ERYTHEMA [None]
  - OEDEMA [None]
  - SHOCK [None]
